FAERS Safety Report 10004105 (Version 1)
Quarter: 2014Q1

REPORT INFORMATION
  Report Type: Spontaneous
  Country: GB (occurrence: GB)
  Receive Date: 20140312
  Receipt Date: 20140312
  Transmission Date: 20141002
  Serious: Yes (Congenital Anomaly)
  Sender: FDA-Public Use
  Company Number: GB-MYLANLABS-2014S1004601

PATIENT
  Sex: 0

DRUGS (1)
  1. ALENDRONIC ACID [Suspect]
     Route: 064

REACTIONS (3)
  - Foetal cardiac disorder [Unknown]
  - Off label use [Unknown]
  - Exposure during pregnancy [Unknown]
